FAERS Safety Report 7175358-3 (Version None)
Quarter: 2010Q4

REPORT INFORMATION
  Report Type: 
  Country: None (occurrence: None)
  Receive Date: 20101220
  Receipt Date: 20100310
  Transmission Date: 20110411
  Serious: No
  Sender: FDA-Public Use
  Company Number: US-AMGEN-TCS398767

PATIENT

DRUGS (5)
  1. ENBREL [Suspect]
     Indication: RHEUMATOID ARTHRITIS
     Dosage: 50 MG, QWK
  2. PREDNISONE [Concomitant]
     Dosage: 7.5 MG, QD
  3. PREDNISONE [Concomitant]
     Dosage: 5 MG, QD
  4. ESOMEPRAZOLE MAGNESIUM [Concomitant]
     Dosage: 40 MG, QD
  5. LEVOTHYROXINE SODIUM [Concomitant]
     Dosage: 50 A?G, QD

REACTIONS (11)
  - ARTHRALGIA [None]
  - ASTHENIA [None]
  - DISTURBANCE IN ATTENTION [None]
  - FATIGUE [None]
  - FEELING ABNORMAL [None]
  - GASTROENTERITIS VIRAL [None]
  - GASTROINTESTINAL MOTILITY DISORDER [None]
  - IMPAIRED DRIVING ABILITY [None]
  - JOINT SWELLING [None]
  - THERAPEUTIC RESPONSE DECREASED [None]
  - THYROID DISORDER [None]
